FAERS Safety Report 8446127-9 (Version None)
Quarter: 2012Q2

REPORT INFORMATION
  Report Type: 
  Country: None (occurrence: None)
  Receive Date: 20120323
  Receipt Date: 20110810
  Transmission Date: 20120825
  Serious: Yes (Other)
  Sender: FDA-Public Use
  Company Number: 163-21880-11081447

PATIENT
  Age: 70 Year
  Sex: Female

DRUGS (13)
  1. LEVOTHYROXINE SODIUM [Concomitant]
  2. OMEPRAZOLE [Concomitant]
  3. DEXAMETHASONE [Concomitant]
  4. HYDROCHLOROTHIAZIDE [Concomitant]
  5. FLUTICASONE PROPIONATE [Concomitant]
  6. WARFARIN SODIUM [Concomitant]
  7. LISINOPRIL [Concomitant]
  8. SIMVASTATIN [Concomitant]
  9. LEXAPRO [Concomitant]
  10. REVLIMID [Suspect]
     Indication: MULTIPLE MYELOMA
     Dosage: SEE IMAGE
     Route: 048
     Dates: start: 20090301
  11. REVLIMID [Suspect]
     Indication: MULTIPLE MYELOMA
     Dosage: SEE IMAGE
     Route: 048
     Dates: start: 20110701
  12. REVLIMID [Suspect]
     Indication: MULTIPLE MYELOMA
     Dosage: SEE IMAGE
     Route: 048
     Dates: start: 20110801
  13. REVLIMID [Suspect]
     Indication: MULTIPLE MYELOMA
     Dosage: SEE IMAGE
     Route: 048
     Dates: start: 20090501, end: 20100101

REACTIONS (3)
  - HAEMOGLOBIN DECREASED [None]
  - FATIGUE [None]
  - ASTHENIA [None]
